FAERS Safety Report 9944622 (Version 1)
Quarter: 2014Q1

REPORT INFORMATION
  Report Type: Report from Study
  Country: US (occurrence: US)
  Receive Date: 20140303
  Receipt Date: 20140303
  Transmission Date: 20141002
  Serious: No
  Sender: FDA-Public Use
  Company Number: US-ABBVIE-13P-163-1052874-00

PATIENT
  Age: 26 Year
  Sex: Male

DRUGS (6)
  1. HUMIRA [Suspect]
     Indication: CROHN^S DISEASE
     Dates: start: 20130202, end: 20130216
  2. HUMIRA [Suspect]
     Dosage: 80MG ORDERED
     Dates: start: 20130216, end: 20130216
  3. HUMIRA [Suspect]
  4. CLONAZEPAM [Concomitant]
     Indication: PRODUCT USED FOR UNKNOWN INDICATION
  5. MARINOL [Concomitant]
     Indication: PRODUCT USED FOR UNKNOWN INDICATION
  6. NORCO [Concomitant]
     Indication: PAIN

REACTIONS (2)
  - Wrong technique in drug usage process [Unknown]
  - Incorrect dose administered [Unknown]
